FAERS Safety Report 24406612 (Version 1)
Quarter: 2024Q4

REPORT INFORMATION
  Report Type: Spontaneous
  Country: US (occurrence: None)
  Receive Date: 20241006
  Receipt Date: 20241006
  Transmission Date: 20250115
  Serious: Yes (Life-Threatening, Hospitalization, Disabling)
  Sender: Public
  Company Number: None

PATIENT
  Age: 36 Year
  Sex: Female
  Weight: 61.2 kg

DRUGS (2)
  1. REMICADE [Suspect]
     Active Substance: INFLIXIMAB
     Indication: Arthritis
     Dates: start: 20240529, end: 20240922
  2. REMICADE [Suspect]
     Active Substance: INFLIXIMAB
     Indication: Pyrexia

REACTIONS (1)
  - Hepatic failure [None]

NARRATIVE: CASE EVENT DATE: 20240925
